FAERS Safety Report 26119419 (Version 1)
Quarter: 2025Q4

REPORT INFORMATION
  Report Type: Spontaneous
  Country: EG (occurrence: EG)
  Receive Date: 20251204
  Receipt Date: 20251204
  Transmission Date: 20260117
  Serious: Yes (Other)
  Sender: SANDOZ
  Company Number: EG-SANDOZ-SDZ2025EG091382

PATIENT
  Sex: Female

DRUGS (1)
  1. TACROLIMUS [Suspect]
     Active Substance: TACROLIMUS
     Indication: Glomerulonephritis
     Dosage: 1 MG
     Route: 048

REACTIONS (2)
  - Hyperglycaemia [Recovered/Resolved]
  - Off label use [Unknown]
